FAERS Safety Report 13127397 (Version 1)
Quarter: 2017Q1

REPORT INFORMATION
  Report Type: Spontaneous
  Country: US (occurrence: US)
  Receive Date: 20170118
  Receipt Date: 20170118
  Transmission Date: 20170428
  Serious: No
  Sender: FDA-Public Use
  Company Number: US-ROCHE-1837519

PATIENT

DRUGS (2)
  1. RITUXAN [Suspect]
     Active Substance: RITUXIMAB
     Dosage: FREQUENCY 4, PATIENT HAS BEEN ON RITUXAN SINCE 2012 AND IN 2013
     Route: 042
  2. RITUXAN [Suspect]
     Active Substance: RITUXIMAB
     Indication: GRANULOMATOSIS WITH POLYANGIITIS
     Dosage: FREQUENCY 4
     Route: 042

REACTIONS (11)
  - Blood immunoglobulin G increased [Unknown]
  - Granulomatosis with polyangiitis [Unknown]
  - Drug ineffective [Unknown]
  - Immunoglobulin G4 related disease [Unknown]
  - Abdominal pain [Unknown]
  - Treatment failure [Unknown]
  - Aortitis [Unknown]
  - Granulomatosis with polyangiitis [Not Recovered/Not Resolved]
  - Aortitis [Unknown]
  - Rheumatic disorder [Unknown]
  - Neutralising antibodies [Unknown]

NARRATIVE: CASE EVENT DATE: 201310
